FAERS Safety Report 6535309-9 (Version None)
Quarter: 2010Q1

REPORT INFORMATION
  Report Type: 
  Country: None (occurrence: None)
  Receive Date: 20100113
  Receipt Date: 20100106
  Transmission Date: 20100710
  Serious: Yes (Disabling)
  Sender: FDA-Public Use
  Company Number: CH-ROCHE-678011

PATIENT
  Age: 44 Year
  Sex: Female
  Weight: 47 kg

DRUGS (1)
  1. BONIVA [Suspect]
     Route: 040
     Dates: start: 20091104

REACTIONS (3)
  - ATRIAL FIBRILLATION [None]
  - ELECTROCARDIOGRAM ABNORMAL [None]
  - HYPOCALCAEMIA [None]
